FAERS Safety Report 9985210 (Version 1)
Quarter: 2014Q1

REPORT INFORMATION
  Report Type: Report from Study
  Country: US (occurrence: US)
  Receive Date: 20140307
  Receipt Date: 20140307
  Transmission Date: 20141002
  Serious: No
  Sender: FDA-Public Use
  Company Number: US-ABBVIE-13P-163-1184675-00

PATIENT
  Age: 38 Year
  Sex: Male

DRUGS (4)
  1. HUMIRA [Suspect]
     Indication: PSORIASIS
     Dates: start: 20131023
  2. ZANTAC [Concomitant]
     Indication: GASTROOESOPHAGEAL REFLUX DISEASE
  3. ZANTAC [Concomitant]
  4. BENADRYL [Concomitant]
     Indication: FOOD ALLERGY

REACTIONS (2)
  - Ear discomfort [Not Recovered/Not Resolved]
  - Headache [Not Recovered/Not Resolved]
